FAERS Safety Report 18500020 (Version 7)
Quarter: 2021Q3

REPORT INFORMATION
  Report Type: Report from Study
  Country: None (occurrence: US)
  Receive Date: 20201113
  Receipt Date: 20210920
  Transmission Date: 20211014
  Serious: Yes (Other)
  Sender: FDA-Public Use
  Company Number: US-ABBVIE-20K-163-3645742-00

PATIENT
  Sex: Female

DRUGS (10)
  1. VENCLEXTA [Suspect]
     Active Substance: VENETOCLAX
     Route: 048
  2. VENCLEXTA [Suspect]
     Active Substance: VENETOCLAX
     Indication: BREAST CANCER FEMALE
     Route: 048
  3. VENCLEXTA [Suspect]
     Active Substance: VENETOCLAX
     Route: 048
  4. VENCLEXTA [Suspect]
     Active Substance: VENETOCLAX
     Indication: BREAST CANCER FEMALE
     Dosage: TAKE 3 TABLET BY MOUTH EVERY DAY
     Route: 048
  5. VENCLEXTA [Suspect]
     Active Substance: VENETOCLAX
     Route: 048
  6. GAZYVA [Suspect]
     Active Substance: OBINUTUZUMAB
     Indication: CHRONIC LYMPHOCYTIC LEUKAEMIA
     Dosage: FORM OF ADMIN: VIAL?INFUSE 1000MG INTRAVENOUSLY EVERY 28 DAY
     Route: 042
     Dates: start: 20200309, end: 2020
  7. GAZYVA [Suspect]
     Active Substance: OBINUTUZUMAB
     Indication: BREAST CANCER FEMALE
  8. GAZYVA [Suspect]
     Active Substance: OBINUTUZUMAB
     Indication: BREAST CANCER FEMALE
     Dosage: INFUSE 1000 MG INTRAVENOUSLY EVERY 28 DAY
     Route: 042
     Dates: start: 20200406
  9. VENCLEXTA [Suspect]
     Active Substance: VENETOCLAX
     Indication: CHRONIC LYMPHOCYTIC LEUKAEMIA
     Dosage: TAKE 3 TABLET BY MOUTH EVERY DAY
     Route: 048
  10. VENCLEXTA [Suspect]
     Active Substance: VENETOCLAX
     Route: 048

REACTIONS (1)
  - Deafness [Unknown]
